FAERS Safety Report 4411430-6 (Version None)
Quarter: 2004Q2

REPORT INFORMATION
  Report Type: 
  Country: None (occurrence: None)
  Receive Date: 20040630
  Receipt Date: 20040524
  Transmission Date: 20050107
  Serious: No
  Sender: FDA-Public Use
  Company Number: 04P-163-0261823-00

PATIENT
  Age: 56 Year
  Sex: Female
  Weight: 117.9352 kg

DRUGS (7)
  1. HUMIRA [Suspect]
     Indication: RHEUMATOID ARTHRITIS
     Dosage: 40 MG,  1 IN 1 WK, SUBCUTANEOUS
     Route: 058
     Dates: start: 20040329, end: 20040504
  2. HUMIRA [Suspect]
     Indication: RHEUMATOID ARTHRITIS
     Dosage: 40 MG,  1 IN 1 WK, SUBCUTANEOUS
     Route: 058
     Dates: start: 20040504
  3. OMEPRAZOLE [Concomitant]
  4. RAMIPRIL [Concomitant]
  5. RIMOLOL [Concomitant]
  6. NABUMETONE [Concomitant]
  7. METHOTREXATE [Concomitant]

REACTIONS (7)
  - ASTHENIA [None]
  - FATIGUE [None]
  - INJECTION SITE ERYTHEMA [None]
  - INJECTION SITE HAEMORRHAGE [None]
  - INJECTION SITE SWELLING [None]
  - MUSCULOSKELETAL STIFFNESS [None]
  - PAIN [None]
